FAERS Safety Report 19410285 (Version 1)
Quarter: 2021Q2

REPORT INFORMATION
  Report Type: Spontaneous
  Country: US (occurrence: US)
  Receive Date: 20210611
  Receipt Date: 20210611
  Transmission Date: 20210717
  Serious: Yes (Hospitalization)
  Sender: FDA-Public Use
  Company Number: None

PATIENT
  Age: 45 Year
  Sex: Male

DRUGS (8)
  1. AMLODIPINE/ VALSARTAN 5MG?160MG [Concomitant]
  2. LANTUS SOLOSTAR [Concomitant]
     Active Substance: INSULIN GLARGINE
  3. VALACYCLOVIR 1GM [Concomitant]
     Active Substance: VALACYCLOVIR HYDROCHLORIDE
  4. OMEPRAZOLE 20MG [Concomitant]
     Active Substance: OMEPRAZOLE
  5. LEVETIRACETAM 500MG [Concomitant]
     Active Substance: LEVETIRACETAM
  6. BIKTARVY [Concomitant]
     Active Substance: BICTEGRAVIR SODIUM\EMTRICITABINE\TENOFOVIR ALAFENAMIDE FUMARATE
  7. HYDROCHLOROTHIAZIDE. [Suspect]
     Active Substance: HYDROCHLOROTHIAZIDE
     Indication: HYPERTENSION
     Route: 048
     Dates: start: 20210318, end: 20210601
  8. ATORVASTATIN 20MG [Concomitant]
     Active Substance: ATORVASTATIN

REACTIONS (3)
  - Acute kidney injury [None]
  - Dehydration [None]
  - Nausea [None]

NARRATIVE: CASE EVENT DATE: 20210601
